APPROVED DRUG PRODUCT: METAPROTERENOL SULFATE
Active Ingredient: METAPROTERENOL SULFATE
Strength: 0.4%
Dosage Form/Route: SOLUTION;INHALATION
Application: A075402 | Product #001
Applicant: APOTEX INC
Approved: Feb 28, 2001 | RLD: No | RS: No | Type: DISCN